APPROVED DRUG PRODUCT: ACETAMINOPHEN
Active Ingredient: ACETAMINOPHEN
Strength: 1GM/100ML (10MG/ML)
Dosage Form/Route: SOLUTION;INTRAVENOUS
Application: N206968 | Product #001
Applicant: HIKMA PHARMACEUTICALS USA INC
Approved: Jun 3, 2022 | RLD: Yes | RS: Yes | Type: RX